FAERS Safety Report 19139578 (Version 1)
Quarter: 2021Q2

REPORT INFORMATION
  Report Type: Spontaneous
  Country: CA (occurrence: CA)
  Receive Date: 20210415
  Receipt Date: 20210415
  Transmission Date: 20210717
  Serious: Yes (Other)
  Sender: FDA-Public Use
  Company Number: CA-PFIZER INC-2021381333

PATIENT
  Age: 32 Year
  Sex: Female

DRUGS (1)
  1. OXALIPLATIN. [Suspect]
     Active Substance: OXALIPLATIN

REACTIONS (5)
  - Hyperventilation [Unknown]
  - Paraesthesia oral [Unknown]
  - Pharyngeal paraesthesia [Unknown]
  - Tremor [Unknown]
  - Eye irritation [Unknown]
